FAERS Safety Report 17531884 (Version 4)
Quarter: 2020Q2

REPORT INFORMATION
  Report Type: Report from Study
  Country: US (occurrence: US)
  Receive Date: 20200312
  Receipt Date: 20200514
  Transmission Date: 20200713
  Serious: Yes (Other)
  Sender: FDA-Public Use
  Company Number: NVSC2020US069951

PATIENT
  Sex: Female

DRUGS (1)
  1. PIQRAY [Suspect]
     Active Substance: ALPELISIB
     Indication: PRODUCT USED FOR UNKNOWN INDICATION
     Dosage: UNK
     Route: 048

REACTIONS (18)
  - Colitis ulcerative [Unknown]
  - Clostridium difficile infection [Unknown]
  - Gingival pain [Recovered/Resolved]
  - Rash [Unknown]
  - Diarrhoea haemorrhagic [Unknown]
  - Weight decreased [Unknown]
  - Glossodynia [Recovered/Resolved]
  - Swelling [Unknown]
  - Lung neoplasm malignant [Unknown]
  - Pain [Unknown]
  - Breast tenderness [Unknown]
  - Dry skin [Unknown]
  - Formication [Unknown]
  - Stomatitis [Unknown]
  - Fatigue [Unknown]
  - Diarrhoea [Unknown]
  - Nausea [Unknown]
  - Blood glucose increased [Unknown]
